FAERS Safety Report 4337060-2 (Version None)
Quarter: 2004Q1

REPORT INFORMATION
  Report Type: 
  Country: None (occurrence: None)
  Receive Date: 20040329
  Receipt Date: 20031126
  Transmission Date: 20041129
  Serious: No
  Sender: FDA-Public Use
  Company Number: USA031253526

PATIENT
  Age: 11 Year
  Sex: Male

DRUGS (1)
  1. STRATTERA [Suspect]
     Dosage: 40 MG/DAY
     Dates: start: 20021001

REACTIONS (3)
  - DEPRESSION [None]
  - DRUG INEFFECTIVE [None]
  - MOOD SWINGS [None]
